FAERS Safety Report 7914161-0 (Version None)
Quarter: 2011Q4

REPORT INFORMATION
  Report Type: 
  Country: None (occurrence: None)
  Receive Date: 20111115
  Receipt Date: 20111115
  Transmission Date: 20120403
  Serious: Yes (Life-Threatening)
  Sender: FDA-Public Use
  Company Number: None

PATIENT
  Age: 64 Year
  Sex: Female
  Weight: 89.811 kg

DRUGS (1)
  1. AVELOX [Suspect]
     Indication: PNEUMONIA BACTERIAL
     Dosage: ONE PILL
     Dates: start: 20111107, end: 20111110

REACTIONS (5)
  - DIZZINESS [None]
  - HEADACHE [None]
  - MUSCULOSKELETAL STIFFNESS [None]
  - ABASIA [None]
  - VERTIGO [None]
